FAERS Safety Report 7204582-6 (Version None)
Quarter: 2010Q4

REPORT INFORMATION
  Report Type: 
  Country: None (occurrence: None)
  Receive Date: 20101230
  Receipt Date: 20101229
  Transmission Date: 20110411
  Serious: Yes (Other)
  Sender: FDA-Public Use
  Company Number: BR-PFIZER INC-2010176225

PATIENT
  Age: 43 Year
  Sex: Female
  Weight: 70 kg

DRUGS (1)
  1. CELEBRA [Suspect]
     Indication: BACK PAIN
     Dosage: UNK
     Route: 048
     Dates: start: 20100101, end: 20100101

REACTIONS (4)
  - BREAST PAIN [None]
  - HYPERSENSITIVITY [None]
  - PRURITUS GENERALISED [None]
  - RASH MACULAR [None]
